FAERS Safety Report 11720683 (Version 3)
Quarter: 2016Q2

REPORT INFORMATION
  Report Type: Report from Study
  Country: US (occurrence: US)
  Receive Date: 20151110
  Receipt Date: 20160428
  Transmission Date: 20160815
  Serious: Yes (Other)
  Sender: FDA-Public Use
  Company Number: US-B.I. PHARMACEUTICALS,INC./RIDGEFIELD-2015-BI-46959BP

PATIENT
  Sex: Male

DRUGS (1)
  1. OFEV [Suspect]
     Active Substance: NINTEDANIB
     Indication: IDIOPATHIC PULMONARY FIBROSIS
     Dosage: 200 MG
     Route: 048
     Dates: start: 20150807

REACTIONS (7)
  - Cellulitis [Unknown]
  - Dyspnoea [Unknown]
  - Cough [Unknown]
  - Heart rate increased [Unknown]
  - Retinal artery embolism [Unknown]
  - Productive cough [Unknown]
  - Diarrhoea [Unknown]
